FAERS Safety Report 19046494 (Version 1)
Quarter: 2021Q1

REPORT INFORMATION
  Report Type: Spontaneous
  Country: US (occurrence: US)
  Receive Date: 20210323
  Receipt Date: 20210323
  Transmission Date: 20210420
  Serious: Yes (Hospitalization, Other)
  Sender: FDA-Public Use
  Company Number: US-PFIZER INC-2021277188

PATIENT
  Age: 79 Year
  Sex: Female
  Weight: 43.8 kg

DRUGS (4)
  1. VINORELBINE [Suspect]
     Active Substance: VINORELBINE TARTRATE
     Indication: BREAST CANCER FEMALE
     Dosage: 25 MG/M2 (FREQUENCY: D1, D8, D15)
     Route: 042
     Dates: start: 20200311
  2. VINORELBINE [Suspect]
     Active Substance: VINORELBINE TARTRATE
     Indication: METASTASES TO CENTRAL NERVOUS SYSTEM
  3. PF?05280014 [Suspect]
     Active Substance: TRASTUZUMAB
     Indication: BREAST CANCER FEMALE
     Dosage: 4 MG/KG (FREQUENCY: D1, D15)
     Route: 042
     Dates: start: 20200311
  4. PF?05280014 [Suspect]
     Active Substance: TRASTUZUMAB
     Indication: METASTASES TO CENTRAL NERVOUS SYSTEM

REACTIONS (7)
  - Fatigue [Unknown]
  - Hydrocephalus [Unknown]
  - Aphasia [Unknown]
  - Vomiting [Unknown]
  - Confusional state [Unknown]
  - Nausea [Unknown]
  - Hypophagia [Unknown]

NARRATIVE: CASE EVENT DATE: 20210208
